FAERS Safety Report 5126527-5 (Version None)
Quarter: 2006Q4

REPORT INFORMATION
  Report Type: 
  Country: None (occurrence: None)
  Receive Date: 20061010
  Receipt Date: 20060927
  Transmission Date: 20070319
  Serious: Yes (Death)
  Sender: FDA-Public Use
  Company Number: S06-USA-04000-01

PATIENT
  Age: 41 Year
  Sex: Female

DRUGS (6)
  1. CELEXA [Suspect]
     Dosage: 40 MG QD PO
     Route: 048
     Dates: end: 20031024
  2. KADIAN [Suspect]
     Indication: BACK PAIN
     Dosage: 60 MG QD PO
     Route: 048
     Dates: start: 20031022, end: 20031023
  3. AMITRIPTYLINE HCL [Suspect]
     Indication: DEPRESSION
     Dosage: 75 MG QD PO
     Route: 048
     Dates: end: 20031023
  4. TRAMADOL HCL [Concomitant]
  5. DIAZEPAM [Concomitant]
  6. PREVACID [Concomitant]

REACTIONS (2)
  - COMPLETED SUICIDE [None]
  - MULTIPLE DRUG OVERDOSE INTENTIONAL [None]
